FAERS Safety Report 9861888 (Version 2)
Quarter: 2014Q1

REPORT INFORMATION
  Report Type: Spontaneous
  Country: JP (occurrence: JP)
  Receive Date: 20140203
  Receipt Date: 20140203
  Transmission Date: 20141002
  Serious: Yes (Death, Other)
  Sender: FDA-Public Use
  Company Number: JP-ROCHE-1325605

PATIENT
  Age: 64 Year
  Sex: Male
  Weight: 72 kg

DRUGS (13)
  1. AVASTIN [Suspect]
     Indication: RECTAL CANCER METASTATIC
     Dosage: DOSAGE IS UNCERTAIN.
     Route: 041
     Dates: start: 20120424, end: 20120718
  2. AVASTIN [Suspect]
     Indication: RECTAL CANCER METASTATIC
     Dosage: DOSAGE IS UNCERTAIN.
     Route: 041
     Dates: start: 20120809, end: 20131203
  3. XELODA [Suspect]
     Indication: RECTAL CANCER METASTATIC
     Dosage: DOSAGE IS UNCERTAIN.
     Route: 048
     Dates: start: 20120424, end: 20120508
  4. XELODA [Suspect]
     Indication: RECTAL CANCER METASTATIC
     Dosage: DOSAGE IS UNCERTAIN.
     Route: 048
     Dates: start: 20120620, end: 20121228
  5. XELODA [Suspect]
     Indication: RECTAL CANCER METASTATIC
     Dosage: IT IS ADMINISTER/ONE WEEKLY HOLIDAY MEDICINE FOR THREE WEEKS.
     Route: 048
     Dates: start: 20130321, end: 20130607
  6. XELODA [Suspect]
     Indication: RECTAL CANCER METASTATIC
     Dosage: IT IS ADMINISTER/ONE WEEKLY HOLIDAY MEDICINE FOR THREE WEEKS.
     Route: 048
     Dates: start: 20130812, end: 20131217
  7. ELPLAT [Suspect]
     Indication: RECTAL CANCER METASTATIC
     Dosage: DOSAGE IS UNCERTAIN.
     Route: 041
     Dates: start: 20120424, end: 20121212
  8. ELPLAT [Suspect]
     Indication: RECTAL CANCER METASTATIC
     Dosage: DOSAGE IS UNCERTAIN.
     Route: 041
     Dates: start: 20130718, end: 20130718
  9. IRINOTECAN HYDROCHLORIDE [Concomitant]
     Indication: RECTAL CANCER METASTATIC
     Dosage: DOSAGE IS UNCERTAIN.
     Route: 041
     Dates: start: 20130809, end: 20130809
  10. PYDOXAL [Concomitant]
     Indication: NEUROPATHY PERIPHERAL
     Route: 065
  11. GOSHAJINKIGAN [Concomitant]
     Indication: NEUROPATHY PERIPHERAL
     Route: 048
  12. EMEND [Concomitant]
     Indication: NAUSEA
     Route: 048
  13. OLMETEC [Concomitant]
     Indication: HYPERTENSION
     Route: 048

REACTIONS (10)
  - Thrombosis [Fatal]
  - Embolism [Fatal]
  - Cardio-respiratory arrest [Fatal]
  - Anaphylactic reaction [Recovered/Resolved]
  - Diarrhoea [Recovering/Resolving]
  - Neuropathy peripheral [Unknown]
  - Palmar-plantar erythrodysaesthesia syndrome [Unknown]
  - Hypertension [Unknown]
  - Chest pain [Unknown]
  - Dehydration [Unknown]
